FAERS Safety Report 20348803 (Version 3)
Quarter: 2022Q1

REPORT INFORMATION
  Report Type: Spontaneous
  Country: US (occurrence: US)
  Receive Date: 20220119
  Receipt Date: 20220125
  Transmission Date: 20220423
  Serious: No
  Sender: FDA-Public Use
  Company Number: US-NOVARTISTESTPH-NVSC2022US005344

PATIENT
  Sex: Female

DRUGS (2)
  1. XIIDRA [Suspect]
     Active Substance: LIFITEGRAST
     Indication: Product used for unknown indication
     Dosage: 1 DRP, BID
     Route: 065
     Dates: start: 20211221
  2. XIIDRA [Suspect]
     Active Substance: LIFITEGRAST
     Dosage: 5 %, QD
     Route: 065

REACTIONS (6)
  - Lip swelling [Unknown]
  - Mouth ulceration [Unknown]
  - Tri-iodothyronine decreased [Unknown]
  - Foreign body sensation in eyes [Unknown]
  - Dry eye [Unknown]
  - Dysgeusia [Unknown]
